FAERS Safety Report 5000620-X (Version None)
Quarter: 2006Q2

REPORT INFORMATION
  Report Type: 
  Country: None (occurrence: None)
  Receive Date: 20060501
  Receipt Date: 20050913
  Transmission Date: 20061013
  Serious: Yes (Other)
  Sender: FDA-Public Use
  Company Number: 2006047212

PATIENT
  Age: 57 Year
  Sex: Female
  Weight: 71.2147 kg

DRUGS (3)
  1. BEXTRA [Suspect]
     Indication: ARTHRITIS
     Dosage: 10 MG (1 IN 1 D)
     Dates: start: 20021115, end: 20021122
  2. LOZOL [Concomitant]
  3. CHROMAGEN (ASCORBIC ACID, CYANOCOBALAMIN, FERROUS FUMARATE, STOMACH DE [Concomitant]

REACTIONS (3)
  - ANGIOPATHY [None]
  - CHILLS [None]
  - STEVENS-JOHNSON SYNDROME [None]
